FAERS Safety Report 13460974 (Version 1)
Quarter: 2017Q2

REPORT INFORMATION
  Report Type: Spontaneous
  Country: US (occurrence: US)
  Receive Date: 20170419
  Receipt Date: 20170419
  Transmission Date: 20170830
  Serious: No
  Sender: FDA-Public Use
  Company Number: None

PATIENT
  Age: 64 Year
  Sex: Female
  Weight: 55.35 kg

DRUGS (6)
  1. VITAMIN B12 [Concomitant]
     Active Substance: CYANOCOBALAMIN
  2. PROBIOTIC [Concomitant]
     Active Substance: PROBIOTICS NOS
  3. CLOMIPRAMINE [Suspect]
     Active Substance: CLOMIPRAMINE
     Indication: OBSESSIVE-COMPULSIVE DISORDER
     Dosage: ?          QUANTITY:25 CAPSULE(S);?
     Route: 048
     Dates: start: 19940401, end: 20170105
  4. VITAMIN D [Concomitant]
     Active Substance: CHOLECALCIFEROL
  5. CLOMIPRAMINE [Suspect]
     Active Substance: CLOMIPRAMINE
     Indication: DEPRESSION
     Dosage: ?          QUANTITY:25 CAPSULE(S);?
     Route: 048
     Dates: start: 19940401, end: 20170105
  6. OVEGA [Concomitant]

REACTIONS (1)
  - Anal incontinence [None]

NARRATIVE: CASE EVENT DATE: 20161231
